FAERS Safety Report 9404758 (Version 2)
Quarter: 2013Q4

REPORT INFORMATION
  Report Type: Spontaneous
  Country: JP (occurrence: JP)
  Receive Date: 20130717
  Receipt Date: 20131119
  Transmission Date: 20140711
  Serious: Yes (Other)
  Sender: FDA-Public Use
  Company Number: PHHY2013JP075606

PATIENT
  Sex: 0

DRUGS (1)
  1. DIOVAN [Suspect]
     Dosage: UNK

REACTIONS (3)
  - Oesophageal injury [Unknown]
  - Oesophageal haemorrhage [Unknown]
  - Incorrect route of drug administration [Unknown]
